FAERS Safety Report 16867629 (Version 2)
Quarter: 2019Q4

REPORT INFORMATION
  Report Type: Spontaneous
  Country: US (occurrence: US)
  Receive Date: 20190930
  Receipt Date: 20191217
  Transmission Date: 20200122
  Serious: No
  Sender: FDA-Public Use
  Company Number: US-GLAXOSMITHKLINE-US2019172041

PATIENT
  Age: 48 Year
  Sex: Female

DRUGS (2)
  1. FLONASE [Suspect]
     Active Substance: FLUTICASONE PROPIONATE
     Indication: MASTOCYTOSIS
     Dosage: SPRAY, QD
  2. FLONASE [Suspect]
     Active Substance: FLUTICASONE PROPIONATE
     Indication: MASTOCYTOSIS
     Dosage: SPRAY, QD
     Dates: start: 2012

REACTIONS (4)
  - Product use in unapproved indication [Unknown]
  - Incorrect product administration duration [Unknown]
  - Feeling abnormal [Unknown]
  - Product complaint [Unknown]

NARRATIVE: CASE EVENT DATE: 2012
